FAERS Safety Report 24174062 (Version 2)
Quarter: 2024Q3

REPORT INFORMATION
  Report Type: Spontaneous
  Country: ES (occurrence: ES)
  Receive Date: 20240805
  Receipt Date: 20240830
  Transmission Date: 20241016
  Serious: Yes (Death, Hospitalization)
  Sender: TEVA
  Company Number: ES-TEVA-VS-3228784

PATIENT
  Age: 46 Year
  Sex: Male

DRUGS (2)
  1. IVERMECTIN [Suspect]
     Active Substance: IVERMECTIN
     Indication: Strongyloidiasis
     Dosage: IVERMECTINE
     Route: 058
  2. MEROPENEM [Suspect]
     Active Substance: MEROPENEM
     Indication: Strongyloidiasis
     Route: 042

REACTIONS (1)
  - Therapy non-responder [Fatal]
